FAERS Safety Report 6647442-1 (Version None)
Quarter: 2010Q1

REPORT INFORMATION
  Report Type: 
  Country: None (occurrence: None)
  Receive Date: 20100322
  Receipt Date: 20100322
  Transmission Date: 20100710
  Serious: No
  Sender: FDA-Public Use
  Company Number: None

PATIENT
  Age: 62 Year
  Sex: Male

DRUGS (3)
  1. MELATONIN [Suspect]
     Indication: SLEEP DISORDER
     Dates: start: 20100219, end: 20100305
  2. TRAZODONE HCL [Suspect]
     Indication: AFFECTIVE DISORDER
     Dosage: 250 MG HS PO
     Route: 048
     Dates: start: 20100219
  3. TRAZODONE HCL [Suspect]
     Indication: SLEEP DISORDER
     Dosage: 250 MG HS PO
     Route: 048
     Dates: start: 20100219

REACTIONS (2)
  - HOMICIDAL IDEATION [None]
  - SUICIDAL IDEATION [None]
